FAERS Safety Report 17581155 (Version 19)
Quarter: 2022Q4

REPORT INFORMATION
  Report Type: Report from Study
  Country: US (occurrence: US)
  Receive Date: 20200325
  Receipt Date: 20221206
  Transmission Date: 20230113
  Serious: Yes (Other)
  Sender: FDA-Public Use
  Company Number: US-SHIRE-US202011080

PATIENT
  Age: 45 Year
  Sex: Female
  Weight: 83 kg

DRUGS (23)
  1. HUMAN IMMUNOGLOBULIN G [Suspect]
     Active Substance: HUMAN IMMUNOGLOBULIN G
     Indication: Immunodeficiency common variable
     Dosage: 12 GRAM, 1/WEEK
     Route: 058
     Dates: start: 20200120
  2. ACETAMINOPHEN [Concomitant]
     Active Substance: ACETAMINOPHEN
     Route: 065
  3. DIPHENHYDRAMINE [Concomitant]
     Active Substance: DIPHENHYDRAMINE
     Route: 065
  4. EPINEPHRINE [Concomitant]
     Active Substance: EPINEPHRINE
     Route: 065
  5. LIDOCAINE [Concomitant]
     Active Substance: LIDOCAINE
     Route: 065
  6. FLONASE [Concomitant]
     Active Substance: FLUTICASONE PROPIONATE
     Route: 065
  7. SERENITY [Concomitant]
     Route: 065
  8. AZELASTINE [Concomitant]
     Active Substance: AZELASTINE
     Route: 065
  9. VITAMIN D3 [Concomitant]
     Active Substance: CHOLECALCIFEROL
     Route: 065
  10. HERBALS\TURMERIC [Concomitant]
     Active Substance: HERBALS\TURMERIC
     Route: 065
  11. LEVOTHYROXINE [Concomitant]
     Active Substance: LEVOTHYROXINE
     Route: 065
  12. TERRA [TEGAFUR;URACIL] [Concomitant]
     Indication: Dyspepsia
     Route: 065
  13. COPAIBA [Concomitant]
     Route: 065
  14. DIGESTIVE ENZYMES [AMYLASE;CELLULASE;LIPASE;MALTASE;PROTEASE;SUCRASE;T [Concomitant]
     Dosage: UNK
     Route: 065
  15. CYMBALTA [Concomitant]
     Active Substance: DULOXETINE HYDROCHLORIDE
     Route: 065
  16. DAPSONE [Concomitant]
     Active Substance: DAPSONE
     Route: 065
  17. ESOMEPRAZOLE MAGNESIUM [Concomitant]
     Active Substance: ESOMEPRAZOLE MAGNESIUM
     Route: 065
  18. PROGESTERONE [Concomitant]
     Active Substance: PROGESTERONE
     Route: 065
  19. CETIRIZINE [Concomitant]
     Active Substance: CETIRIZINE HYDROCHLORIDE
     Route: 065
  20. AZELASTINE HYDROCHLORIDE [Concomitant]
     Active Substance: AZELASTINE HYDROCHLORIDE
  21. CETIRIZINE HCL [Concomitant]
     Active Substance: CETIRIZINE HYDROCHLORIDE
  22. FLUTICASONE PROPIONATE [Concomitant]
     Active Substance: FLUTICASONE PROPIONATE
  23. PROBIOTICS NOS [Concomitant]
     Active Substance: PROBIOTICS NOS

REACTIONS (21)
  - Haematochezia [Unknown]
  - Nephrolithiasis [Unknown]
  - Urinary tract infection [Unknown]
  - Hypoaesthesia oral [Unknown]
  - Blepharospasm [Unknown]
  - Upper respiratory tract infection [Unknown]
  - Sinusitis [Unknown]
  - Pharyngitis streptococcal [Unknown]
  - Injection site swelling [Unknown]
  - Throat tightness [Unknown]
  - Injection site discharge [Unknown]
  - COVID-19 [Unknown]
  - Infusion related reaction [Unknown]
  - Dizziness [Unknown]
  - Urticaria [Not Recovered/Not Resolved]
  - Fatigue [Unknown]
  - Malaise [Unknown]
  - Swelling [Unknown]
  - Insurance issue [Unknown]
  - Crying [Unknown]
  - Product dose omission issue [Unknown]

NARRATIVE: CASE EVENT DATE: 20200301
